FAERS Safety Report 7949184-9 (Version None)
Quarter: 2011Q4

REPORT INFORMATION
  Report Type: 
  Country: None (occurrence: None)
  Receive Date: 20111130
  Receipt Date: 20111117
  Transmission Date: 20120403
  Serious: Yes (Hospitalization, Other)
  Sender: FDA-Public Use
  Company Number: US-ASTRAZENECA-2011SE44108

PATIENT
  Age: 815 Month
  Sex: Male
  Weight: 91.6 kg

DRUGS (12)
  1. ZEGERID OTC [Concomitant]
     Indication: GASTROOESOPHAGEAL REFLUX DISEASE
  2. EXELON [Concomitant]
  3. SEROQUEL XR [Suspect]
     Indication: SCHIZOPHRENIA
     Route: 048
     Dates: end: 20080101
  4. SEROQUEL XR [Suspect]
     Route: 048
     Dates: start: 20080101
  5. ASPIRIN [Concomitant]
  6. LORAZEPAM [Concomitant]
     Indication: AGITATION
     Dosage: 1-2 DF EVERY 6-8 HOURS AS NEEDED.
  7. CRESTOR [Concomitant]
     Indication: HYPERCHOLESTEROLAEMIA
  8. LORAZEPAM [Concomitant]
     Indication: ANXIETY
     Dosage: 1-2 DF EVERY 6-8 HOURS AS NEEDED.
  9. SEROQUEL XR [Suspect]
     Indication: BIPOLAR DISORDER
     Route: 048
     Dates: end: 20080101
  10. LISINOPRIL [Concomitant]
     Indication: HYPERTENSION
     Route: 048
  11. NAMENDA [Concomitant]
  12. SEROQUEL XR [Suspect]
     Route: 048
     Dates: start: 20080101

REACTIONS (7)
  - AORTIC ANEURYSM [None]
  - ABNORMAL BEHAVIOUR [None]
  - BIPOLAR DISORDER [None]
  - DRUG DOSE OMISSION [None]
  - SCHIZOPHRENIA [None]
  - PROSTATE CANCER [None]
  - INSOMNIA [None]
